FAERS Safety Report 24545154 (Version 1)
Quarter: 2024Q4

REPORT INFORMATION
  Report Type: Spontaneous
  Country: US (occurrence: None)
  Receive Date: 20241023
  Receipt Date: 20241023
  Transmission Date: 20250115
  Serious: Yes (Life-Threatening)
  Sender: Public
  Company Number: None

PATIENT
  Age: 17 Year
  Sex: Male
  Weight: 94.5 kg

DRUGS (6)
  1. MONTELUKAST [Suspect]
     Active Substance: MONTELUKAST
     Indication: Asthma
     Dosage: OTHER QUANTITY : 1 TABLET(S);?FREQUENCY : AT BEDTIME;?
     Route: 048
     Dates: start: 20130930, end: 20240430
  2. MONTELUKAST [Suspect]
     Active Substance: MONTELUKAST
     Indication: Multiple allergies
  3. LEVOCETIRIZINE [Suspect]
     Active Substance: LEVOCETIRIZINE
  4. BREO ELLIPTA [Concomitant]
     Active Substance: FLUTICASONE FUROATE\VILANTEROL TRIFENATATE
  5. ALBUTEROL [Concomitant]
     Active Substance: ALBUTEROL
  6. EPINEPHRINE [Concomitant]
     Active Substance: EPINEPHRINE

REACTIONS (5)
  - Sleep terror [None]
  - Somnambulism [None]
  - Sleep talking [None]
  - Hallucination [None]
  - Suicide attempt [None]

NARRATIVE: CASE EVENT DATE: 20240304
